FAERS Safety Report 6875496-6 (Version None)
Quarter: 2010Q3

REPORT INFORMATION
  Report Type: 
  Country: None (occurrence: None)
  Receive Date: 20100727
  Receipt Date: 20100719
  Transmission Date: 20110219
  Serious: Yes (Other)
  Sender: FDA-Public Use
  Company Number: US-JNJFOC-20100503885

PATIENT
  Age: 5 Year
  Sex: Male
  Weight: 20.87 kg

DRUGS (2)
  1. CONCENTRATED TYLENOL INFANT DROPS [Suspect]
     Route: 048
  2. CONCENTRATED TYLENOL INFANT DROPS [Suspect]
     Indication: NASOPHARYNGITIS
     Route: 048

REACTIONS (4)
  - COUGH [None]
  - INTENTIONAL DRUG MISUSE [None]
  - NASOPHARYNGITIS [None]
  - PRODUCT CONTAMINATION PHYSICAL [None]
